FAERS Safety Report 12198607 (Version 1)
Quarter: 2016Q1

REPORT INFORMATION
  Report Type: Spontaneous
  Country: US (occurrence: None)
  Receive Date: 20160321
  Receipt Date: 20160321
  Transmission Date: 20160526
  Serious: No
  Sender: FDA-Public Use
  Company Number: None

PATIENT
  Age: 63 Year
  Sex: Female

DRUGS (1)
  1. HUMIRA [Suspect]
     Active Substance: ADALIMUMAB
     Indication: PRODUCT USED FOR UNKNOWN INDICATION
     Dosage: 40MG EVERY 14 DAYS SUBCUTANEOUS
     Route: 058
     Dates: start: 20160209, end: 20160309

REACTIONS (1)
  - Rash [None]

NARRATIVE: CASE EVENT DATE: 20160309
